FAERS Safety Report 20390022 (Version 1)
Quarter: 2022Q1

REPORT INFORMATION
  Report Type: Spontaneous
  Country: FR (occurrence: FR)
  Receive Date: 20220128
  Receipt Date: 20220128
  Transmission Date: 20220423
  Serious: Yes (Other)
  Sender: FDA-Public Use
  Company Number: None

PATIENT
  Age: 53 Year
  Sex: Female

DRUGS (5)
  1. DESLORATADINE [Suspect]
     Active Substance: DESLORATADINE
     Indication: Product used for unknown indication
     Dosage: UNKNOWN,THERAPY START DATE :THERAPY END DATE :ASKU
     Route: 048
  2. PANTOPRAZOLE [Suspect]
     Active Substance: PANTOPRAZOLE
     Indication: Product used for unknown indication
     Dosage: 40MG,THERAPY START DATE :THERAPY END DATE :ASKU
     Route: 048
  3. PROGESTERONE [Suspect]
     Active Substance: PROGESTERONE
     Indication: Menopausal symptoms prophylaxis
     Dosage: 200MG,THERAPY START DATE:THERAPY END DATE:ASKU
     Route: 048
  4. COMIRNATY [Suspect]
     Active Substance: TOZINAMERAN
     Indication: COVID-19 immunisation
     Dosage: D2,COMIRNATY 30 MICROGRAMS/DOSE, DISPERSION FOR CONCENTRATE FOR SOLUTION FOR INJECTION MRNA (MODIFIE
     Route: 030
     Dates: start: 20210603, end: 20210603
  5. ESTRADIOL [Suspect]
     Active Substance: ESTRADIOL
     Indication: Menopausal symptoms prophylaxis
     Dosage: OESCLIM 37.5 MICROGRAMS/24 HOURS (7.5 MG/16.5 CM2), TRANSDERMAL PATCH,UNIT DOSE:1DF,THERAPY START DA
     Route: 062

REACTIONS (1)
  - Epilepsy [Not Recovered/Not Resolved]

NARRATIVE: CASE EVENT DATE: 20210615
